FAERS Safety Report 4646666-2 (Version None)
Quarter: 2005Q2

REPORT INFORMATION
  Report Type: 
  Country: None (occurrence: None)
  Receive Date: 20050425
  Receipt Date: 20050412
  Transmission Date: 20051028
  Serious: No
  Sender: FDA-Public Use
  Company Number: 05P-163-0297153-00

PATIENT
  Age: 22 Year
  Sex: Male
  Weight: 128 kg

DRUGS (5)
  1. SEVOFLURANE [Suspect]
     Indication: MAINTENANCE OF ANAESTHESIA
  2. KETAMINE HCL [Concomitant]
  3. MIDAZOLAM HCL [Concomitant]
  4. ROCURONIUM [Concomitant]
  5. FENTANYL [Concomitant]

REACTIONS (4)
  - AIRWAY COMPLICATION OF ANAESTHESIA [None]
  - BLOOD GLUCOSE ABNORMAL [None]
  - PO2 DECREASED [None]
  - WHEEZING [None]
